FAERS Safety Report 8617849 (Version 3)
Quarter: 2012Q4

REPORT INFORMATION
  Report Type: Report from Study
  Country: US (occurrence: None)
  Receive Date: 20120529
  Receipt Date: 20121128
  Transmission Date: 20130627
  Serious: Yes (Other)
  Sender: FDA-Public Use
  Company Number: 2012PROUSA01435

PATIENT
  Age: 76 Year
  Sex: Male
  Weight: 91.6 kg

DRUGS (11)
  1. PROVENGE [Suspect]
     Indication: PROSTATE CANCER METASTATIC
     Dosage: 250 ML, SINGLE, INTRAVENOUS
     Route: 042
     Dates: start: 20120514, end: 20120514
  2. PROVENGE [Suspect]
     Indication: PROSTATE CANCER METASTATIC
     Dosage: 250 ml, single, intravenous
     Route: 042
     Dates: start: 20120611, end: 20120611
  3. PROVENGE [Suspect]
     Indication: PROSTATE CANCER METASTATIC
     Dosage: 250 ml. single, intravenous
     Route: 042
     Dates: start: 20120625, end: 20120625
  4. ALLOPURINOL [Concomitant]
  5. XANAX [Concomitant]
  6. FELODIPINE [Concomitant]
  7. GLYBURIDE [Concomitant]
  8. TRIGENTA (BETAMETHASONE DIPROPIONATE, CLOTRIMAZOLE, GENTAMICIN SULFATE) [Concomitant]
  9. COZAAR [Concomitant]
  10. METOPROLOL TARTRATE [Concomitant]
  11. SIMVASTATIN [Concomitant]

REACTIONS (1)
  - HYPOTENSION [None]
